FAERS Safety Report 7554409-8 (Version None)
Quarter: 2011Q2

REPORT INFORMATION
  Report Type: 
  Country: None (occurrence: None)
  Receive Date: 20110617
  Receipt Date: 20110601
  Transmission Date: 20111010
  Serious: Yes (Hospitalization)
  Sender: FDA-Public Use
  Company Number: A0791245A

PATIENT
  Sex: Male
  Weight: 67.3 kg

DRUGS (6)
  1. CELLCEPT [Concomitant]
  2. PREDNISONE [Concomitant]
  3. PROGRAF [Concomitant]
  4. LISINOPRIL [Concomitant]
  5. AVANDIA [Suspect]
     Indication: DIABETES MELLITUS
     Route: 048
  6. METOPROLOL TARTRATE [Concomitant]

REACTIONS (2)
  - CEREBROVASCULAR ACCIDENT [None]
  - ATRIAL FIBRILLATION [None]
